FAERS Safety Report 13382315 (Version 1)
Quarter: 2017Q1

REPORT INFORMATION
  Report Type: Spontaneous
  Country: US (occurrence: US)
  Receive Date: 20170329
  Receipt Date: 20170329
  Transmission Date: 20170429
  Serious: No
  Sender: FDA-Public Use
  Company Number: US-BAYER-2017-059488

PATIENT
  Age: 81 Year
  Sex: Male
  Weight: 88 kg

DRUGS (6)
  1. MIRALAX [Suspect]
     Active Substance: POLYETHYLENE GLYCOL 3350
     Indication: GASTROINTESTINAL DISORDER
     Route: 048
     Dates: start: 20170327
  2. LOVASTATIN. [Concomitant]
     Active Substance: LOVASTATIN
  3. PRADAXA [Concomitant]
     Active Substance: DABIGATRAN ETEXILATE MESYLATE
  4. DILT-XR [Concomitant]
     Active Substance: DILTIAZEM
  5. TAMSULOSIN [Concomitant]
     Active Substance: TAMSULOSIN
  6. ASPIRIN. [Concomitant]
     Active Substance: ASPIRIN

REACTIONS (1)
  - Product use issue [Unknown]

NARRATIVE: CASE EVENT DATE: 20170327
